FAERS Safety Report 7644794-0 (Version None)
Quarter: 2011Q3

REPORT INFORMATION
  Report Type: 
  Country: None (occurrence: None)
  Receive Date: 20110729
  Receipt Date: 20110719
  Transmission Date: 20111222
  Serious: Yes (Hospitalization)
  Sender: FDA-Public Use
  Company Number: FR-B.I. PHARMACEUTICALS,INC./RIDGEFIELD-2010-FF-00109FF

PATIENT
  Sex: Female
  Weight: 71 kg

DRUGS (3)
  1. PRADAXA [Suspect]
     Indication: KNEE ARTHROPLASTY
  2. PRADAXA [Suspect]
     Indication: THROMBOSIS PROPHYLAXIS
     Dosage: 220 MG
     Route: 048
     Dates: start: 20100127, end: 20100314
  3. KETOPROFEN [Suspect]
     Indication: PAIN
     Dosage: 300 MG
     Route: 048
     Dates: start: 20100127

REACTIONS (3)
  - HAEMATOMA [None]
  - DRUG INEFFECTIVE [None]
  - DEEP VEIN THROMBOSIS [None]
